FAERS Safety Report 14434544 (Version 1)
Quarter: 2018Q1

REPORT INFORMATION
  Report Type: Spontaneous
  Country: US (occurrence: US)
  Receive Date: 20180124
  Receipt Date: 20180124
  Transmission Date: 20180509
  Serious: No
  Sender: FDA-Public Use
  Company Number: US-TARO-2017TAR01025

PATIENT
  Age: 81 Year
  Sex: Female
  Weight: 53.74 kg

DRUGS (1)
  1. CLOTRIMAZOLE VAGINAL CREAM USP 1% 7 DAY [Suspect]
     Active Substance: CLOTRIMAZOLE
     Indication: VULVOVAGINAL PRURITUS
     Dosage: UNK, 1X/DAY AT NIGHT
     Route: 067
     Dates: start: 20171123, end: 201711

REACTIONS (3)
  - Application site haemorrhage [Recovered/Resolved]
  - Product quality issue [Recovered/Resolved]
  - Application site pain [Recovered/Resolved]

NARRATIVE: CASE EVENT DATE: 20171123
